FAERS Safety Report 9174633 (Version 1)
Quarter: 2013Q1

REPORT INFORMATION
  Report Type: Spontaneous
  Country: US (occurrence: US)
  Receive Date: 20130320
  Receipt Date: 20130320
  Transmission Date: 20140127
  Serious: Yes (Other)
  Sender: FDA-Public Use
  Company Number: PHEH2013US006426

PATIENT
  Age: 74 Year
  Sex: Male

DRUGS (12)
  1. TASIGNA [Suspect]
     Indication: CHRONIC MYELOID LEUKAEMIA
     Dosage: 300 MG, DAILY
     Route: 048
     Dates: start: 20130124
  2. VITAMIN E [Concomitant]
  3. DIOVAN [Concomitant]
  4. LOVAZA [Concomitant]
  5. STARLIX [Concomitant]
  6. HYDROCODONE [Concomitant]
  7. METFORMIN [Concomitant]
  8. TRICOR [Concomitant]
  9. LEXAPRO [Concomitant]
  10. VITAMIIN C [Concomitant]
  11. OMEGA 3 [Concomitant]
  12. MEGACE [Concomitant]

REACTIONS (3)
  - Pleural effusion [Not Recovered/Not Resolved]
  - Dyspnoea [Not Recovered/Not Resolved]
  - Fatigue [Not Recovered/Not Resolved]
